FAERS Safety Report 8247594-6 (Version None)
Quarter: 2012Q1

REPORT INFORMATION
  Report Type: 
  Country: None (occurrence: None)
  Receive Date: 20120330
  Receipt Date: 20120322
  Transmission Date: 20120608
  Serious: Yes (Other)
  Sender: FDA-Public Use
  Company Number: PHHY2012GB025552

PATIENT
  Age: 67 Year
  Sex: Male
  Weight: 73 kg

DRUGS (5)
  1. PERINDOPRIL [Concomitant]
     Indication: HYPERTENSION
     Dosage: 4 MG, QD
     Dates: start: 20091009
  2. SIMVASTATIN [Suspect]
     Indication: BLOOD CHOLESTEROL INCREASED
     Dosage: 40 MG, QD
     Route: 048
     Dates: start: 20060101
  3. LANSOPRAZOLE [Concomitant]
     Indication: DYSPEPSIA
     Dosage: 30 MG, QD
     Dates: start: 20090508
  4. GAVISCON [Concomitant]
     Indication: DYSPEPSIA
     Dates: start: 20071230
  5. NORTRIPTYLINE HCL [Concomitant]
     Indication: IRRITABLE BOWEL SYNDROME
     Dosage: 10 MG, QD
     Dates: start: 20110311

REACTIONS (2)
  - APHASIA [None]
  - BLOOD UREA INCREASED [None]
